FAERS Safety Report 7321176-2 (Version None)
Quarter: 2011Q1

REPORT INFORMATION
  Report Type: 
  Country: None (occurrence: None)
  Receive Date: 20110228
  Receipt Date: 20110222
  Transmission Date: 20110831
  Serious: Yes (Hospitalization, Other)
  Sender: FDA-Public Use
  Company Number: US-PFIZER INC-2009167429

PATIENT
  Sex: Male
  Weight: 77.098 kg

DRUGS (6)
  1. VIAGRA [Suspect]
     Dosage: 100 MG, UNK
  2. LIPITOR [Concomitant]
     Indication: BLOOD CHOLESTEROL INCREASED
     Dosage: UNK
  3. GLYBURIDE [Concomitant]
     Indication: DIABETES MELLITUS
     Dosage: UNK
  4. TRI-MIX (PPP) [Suspect]
     Dosage: UNK
  5. LOSARTAN [Concomitant]
     Indication: HYPERTENSION
     Dosage: UNK
  6. VIAGRA [Suspect]
     Indication: ERECTILE DYSFUNCTION
     Dosage: UNKNOWN
     Dates: start: 20060101

REACTIONS (3)
  - ERECTION INCREASED [None]
  - DRUG INEFFECTIVE [None]
  - PROSTATIC OPERATION [None]
